FAERS Safety Report 13765121 (Version 1)
Quarter: 2017Q3

REPORT INFORMATION
  Report Type: Spontaneous
  Country: FR (occurrence: FR)
  Receive Date: 20170718
  Receipt Date: 20170718
  Transmission Date: 20171127
  Serious: Yes (Hospitalization)
  Sender: FDA-Public Use
  Company Number: PHHY2017FR103819

PATIENT
  Sex: Male

DRUGS (1)
  1. LAMISIL [Suspect]
     Active Substance: TERBINAFINE HYDROCHLORIDE
     Indication: ONYCHOMYCOSIS
     Dosage: 250 MG, QD
     Route: 048
     Dates: start: 20161018, end: 20170617

REACTIONS (4)
  - Cardiac failure [Recovered/Resolved with Sequelae]
  - Pleural effusion [Recovered/Resolved with Sequelae]
  - Atrial fibrillation [Not Recovered/Not Resolved]
  - Left ventricular failure [Recovered/Resolved with Sequelae]

NARRATIVE: CASE EVENT DATE: 2017
